FAERS Safety Report 10416065 (Version 6)
Quarter: 2014Q4

REPORT INFORMATION
  Report Type: Report from Study
  Country: BR (occurrence: BR)
  Receive Date: 20140828
  Receipt Date: 20141021
  Transmission Date: 20150528
  Serious: Yes (Life-Threatening, Hospitalization, Other)
  Sender: FDA-Public Use
  Company Number: BR-PFIZER INC-2014233882

PATIENT
  Age: 57 Year
  Sex: Female
  Weight: 81.3 kg

DRUGS (11)
  1. TOFACITINIB CITRATE [Suspect]
     Active Substance: TOFACITINIB CITRATE
     Indication: RHEUMATOID ARTHRITIS
     Dosage: 5 MG, TWICE A DAY
     Route: 048
     Dates: start: 20100301, end: 20140819
  2. DIACEREIN [Concomitant]
     Active Substance: DIACEREIN
     Indication: SYNOVIAL CYST
     Dosage: 50 MG, ONCE A DAY
     Route: 048
     Dates: start: 20130310
  3. HYDROCHLOROTHIAZIDE. [Concomitant]
     Active Substance: HYDROCHLOROTHIAZIDE
     Indication: HYPERTENSION
     Dosage: 25 MG, ONCE A DAY
     Route: 048
     Dates: start: 20100427, end: 20140820
  4. FAMOTIDINE. [Concomitant]
     Active Substance: FAMOTIDINE
     Indication: SYNOVIAL CYST
     Dosage: 30 MG, ONCE A DAY
     Route: 048
     Dates: start: 20130310
  5. KETOCONAZOLE. [Concomitant]
     Active Substance: KETOCONAZOLE
     Indication: ONYCHOMYCOSIS
     Dosage: 1 DOSE 3X/WEEK; 2%
     Route: 061
     Dates: start: 20130819, end: 20140820
  6. PREDNISONE. [Concomitant]
     Active Substance: PREDNISONE
     Indication: RHEUMATOID ARTHRITIS
     Dosage: 5 MG, 1X/DAY
     Route: 048
     Dates: start: 20130310, end: 20140819
  7. ENALAPRIL [Concomitant]
     Active Substance: ENALAPRIL
     Indication: HYPERTENSION
     Dosage: 5 MG, ONCE A DAY
     Route: 048
     Dates: start: 20110823, end: 20140820
  8. SIMVASTATIN. [Concomitant]
     Active Substance: SIMVASTATIN
     Indication: HYPERCHOLESTEROLAEMIA
     Dosage: 40 MG, ONCE A DAY
     Route: 048
     Dates: start: 20131022
  9. MICONAZOLE [Concomitant]
     Active Substance: MICONAZOLE
     Indication: ONYCHOMYCOSIS
     Dosage: 1 DOSE ONCE A TIME DAILY; 2%
     Route: 061
     Dates: start: 20130830, end: 20140819
  10. OMEPRAZOLE. [Concomitant]
     Active Substance: OMEPRAZOLE
     Indication: GASTRITIS PROPHYLAXIS
     Dosage: 40 MG, ONCE A DAY
     Route: 048
     Dates: start: 20100303
  11. MELOXICAM. [Concomitant]
     Active Substance: MELOXICAM
     Indication: SYNOVIAL CYST
     Dosage: 15 MG, ONCE A DAY
     Route: 048
     Dates: start: 20130310

REACTIONS (2)
  - Septic shock [Recovered/Resolved]
  - Meningococcal bacteraemia [Recovered/Resolved]

NARRATIVE: CASE EVENT DATE: 20140813
